FAERS Safety Report 7449841-7 (Version None)
Quarter: 2011Q2

REPORT INFORMATION
  Report Type: 
  Country: None (occurrence: None)
  Receive Date: 20110502
  Receipt Date: 20101216
  Transmission Date: 20111010
  Serious: Yes (Hospitalization, Other)
  Sender: FDA-Public Use
  Company Number: US-BAYER-201032848NA

PATIENT
  Age: 23 Year
  Sex: Female
  Weight: 106 kg

DRUGS (11)
  1. MOTRIN [Concomitant]
  2. ALEVE [Concomitant]
  3. OCELLA [Suspect]
     Indication: ORAL CONTRACEPTION
     Dosage: 3MG, 0.03MG
     Route: 048
     Dates: start: 20090101, end: 20091101
  4. ASACOL [Concomitant]
     Dosage: 800 MG, TID
     Route: 048
     Dates: start: 20100115
  5. IBUPROFEN AL [Concomitant]
  6. CIPROFLOXACIN [Concomitant]
     Dosage: 500 MG, QD
     Route: 048
     Dates: start: 20100108
  7. PHENTERMINE [Concomitant]
     Dosage: 37.5 MG, UNK
     Route: 048
  8. YASMIN [Suspect]
     Indication: ORAL CONTRACEPTION
     Route: 048
     Dates: start: 20051228, end: 20100505
  9. METRONIDAZOLE [Concomitant]
     Dosage: 500 MG, BID
     Route: 048
     Dates: start: 20100108
  10. PREDNISONE [Concomitant]
     Dosage: 10 MG, TAPERED DOSES
     Dates: start: 20100115
  11. ETODOLAC [Concomitant]
     Dosage: UNK
     Dates: start: 20080101

REACTIONS (8)
  - IRRITABLE BOWEL SYNDROME [None]
  - DRUG EXPOSURE DURING PREGNANCY [None]
  - NAUSEA [None]
  - PREGNANCY [None]
  - DIARRHOEA [None]
  - CHOLECYSTITIS CHRONIC [None]
  - ABDOMINAL PAIN UPPER [None]
  - BILIARY DYSKINESIA [None]
